FAERS Safety Report 20633363 (Version 1)
Quarter: 2022Q1

REPORT INFORMATION
  Report Type: Spontaneous
  Country: JP (occurrence: None)
  Receive Date: 20220324
  Receipt Date: 20220324
  Transmission Date: 20220423
  Serious: Yes (Other)
  Sender: FDA-Public Use
  Company Number: 2022A119194

PATIENT
  Sex: Female

DRUGS (2)
  1. LYNPARZA [Suspect]
     Active Substance: OLAPARIB
     Indication: Ovarian cancer recurrent
     Route: 048
     Dates: start: 202101
  2. LYNPARZA [Suspect]
     Active Substance: OLAPARIB
     Indication: Ovarian cancer recurrent
     Dosage: DOSE UNKNOWN
     Route: 048

REACTIONS (2)
  - Neoplasm malignant [Unknown]
  - Anaemia macrocytic [Recovered/Resolved]

NARRATIVE: CASE EVENT DATE: 20210401
